FAERS Safety Report 24851970 (Version 1)
Quarter: 2025Q1

REPORT INFORMATION
  Report Type: Spontaneous
  Country: US (occurrence: US)
  Receive Date: 20250116
  Receipt Date: 20250116
  Transmission Date: 20250409
  Serious: No
  Sender: SK LIFE SCIENCE
  Company Number: US-SK LIFE SCIENCE, INC-SKPVG-2024-001989

PATIENT

DRUGS (1)
  1. XCOPRI [Suspect]
     Active Substance: CENOBAMATE
     Indication: Product used for unknown indication
     Route: 065

REACTIONS (10)
  - Loss of personal independence in daily activities [Unknown]
  - Loss of control of legs [Unknown]
  - Hypokinesia [Unknown]
  - Decreased interest [Unknown]
  - Feeding disorder [Unknown]
  - Cognitive disorder [Unknown]
  - Disturbance in attention [Unknown]
  - Asthenia [Unknown]
  - Somnolence [Unknown]
  - Memory impairment [Unknown]
